FAERS Safety Report 7211646-X (Version None)
Quarter: 2011Q1

REPORT INFORMATION
  Report Type: 
  Country: None (occurrence: None)
  Receive Date: 20110105
  Receipt Date: 20101227
  Transmission Date: 20110831
  Serious: Yes (Death, Other)
  Sender: FDA-Public Use
  Company Number: DE-BAYER-2011-000281

PATIENT

DRUGS (1)
  1. NAPROXEN SODIUM [Suspect]
     Indication: OSTEOARTHRITIS
     Dosage: 500 MG, BID
     Route: 065

REACTIONS (12)
  - OSTEOARTHRITIS [None]
  - DIZZINESS [None]
  - DYSPEPSIA [None]
  - VERTIGO [None]
  - AORTIC INTRAMURAL HAEMATOMA [None]
  - DIARRHOEA [None]
  - HYPOTENSION [None]
  - NAUSEA [None]
  - ABDOMINAL PAIN UPPER [None]
  - HEADACHE [None]
  - HYPERTENSION [None]
  - ABDOMINAL PAIN [None]
